FAERS Safety Report 7971737-2 (Version None)
Quarter: 2011Q4

REPORT INFORMATION
  Report Type: 
  Country: None (occurrence: None)
  Receive Date: 20111212
  Receipt Date: 20111202
  Transmission Date: 20120403
  Serious: Yes (Hospitalization, Other)
  Sender: FDA-Public Use
  Company Number: US-ASTRAZENECA-2011SE53699

PATIENT
  Age: 64 Year
  Sex: Female
  Weight: 59 kg

DRUGS (3)
  1. OTHER MEDICATION [Concomitant]
     Indication: BLOOD PRESSURE ABNORMAL
  2. SEROQUEL [Suspect]
     Indication: BIPOLAR DISORDER
     Route: 048
     Dates: start: 20050101
  3. NEXIUM [Suspect]
     Indication: GASTRIC ULCER
     Route: 048
     Dates: start: 20030101

REACTIONS (5)
  - TRANSIENT ISCHAEMIC ATTACK [None]
  - HEAD INJURY [None]
  - FALL [None]
  - BIPOLAR DISORDER [None]
  - DRUG DOSE OMISSION [None]
